FAERS Safety Report 9801250 (Version 2)
Quarter: 2014Q1

REPORT INFORMATION
  Report Type: Spontaneous
  Country: DE (occurrence: DE)
  Receive Date: 20140107
  Receipt Date: 20140211
  Transmission Date: 20141002
  Serious: Yes (Hospitalization)
  Sender: FDA-Public Use
  Company Number: DE-CELGENEUS-062-21660-13125070

PATIENT
  Age: 46 Year
  Sex: Female

DRUGS (12)
  1. ABRAXANE [Suspect]
     Indication: BREAST CANCER
     Route: 041
     Dates: start: 20130620
  2. PERTUZUMAB [Suspect]
     Indication: BREAST CANCER
     Route: 041
     Dates: start: 20130620
  3. PERTUZUMAB [Suspect]
     Route: 041
     Dates: start: 20131205
  4. PERTUZUMAB [Suspect]
     Route: 041
     Dates: start: 20130711
  5. TRASTUZUMAB [Suspect]
     Indication: BREAST CANCER
     Route: 041
     Dates: start: 20130620
  6. TRASTUZUMAB [Suspect]
     Route: 041
     Dates: start: 20131205
  7. TRASTUZUMAB [Suspect]
     Route: 041
     Dates: start: 20130711
  8. OMEPRAZOLE [Concomitant]
     Indication: PRODUCT USED FOR UNKNOWN INDICATION
     Route: 065
     Dates: start: 20130924
  9. SELEN [Concomitant]
     Indication: PRODUCT USED FOR UNKNOWN INDICATION
     Dosage: UG
     Route: 065
     Dates: start: 20130926
  10. VITAMIN B6 [Concomitant]
     Indication: PRODUCT USED FOR UNKNOWN INDICATION
     Route: 065
     Dates: start: 20131014
  11. CITALOPRAM [Concomitant]
     Indication: PRODUCT USED FOR UNKNOWN INDICATION
     Dosage: 40 MILLIGRAM
     Route: 065
     Dates: start: 201305
  12. CLEXANE [Concomitant]
     Indication: THROMBOSIS PROPHYLAXIS
     Dosage: 20 MILLIGRAM
     Route: 065
     Dates: start: 20130620, end: 20131205

REACTIONS (1)
  - Catheter site inflammation [Recovered/Resolved]
